FAERS Safety Report 25564809 (Version 2)
Quarter: 2025Q3

REPORT INFORMATION
  Report Type: Spontaneous
  Country: EU (occurrence: EU)
  Receive Date: 20250716
  Receipt Date: 20250910
  Transmission Date: 20251021
  Serious: Yes (Other)
  Sender: NOVARTIS
  Company Number: EU-002147023-NVSC2025FR112599

PATIENT
  Age: 31 Year
  Sex: Female
  Weight: 64 kg

DRUGS (3)
  1. COSENTYX [Suspect]
     Active Substance: SECUKINUMAB
     Indication: Axial spondyloarthritis
     Route: 058
     Dates: start: 20250425, end: 202505
  2. COSENTYX [Suspect]
     Active Substance: SECUKINUMAB
     Route: 058
     Dates: start: 20250614, end: 20250625
  3. ETHINYL ESTRADIOL\LEVONORGESTREL [Concomitant]
     Active Substance: ETHINYL ESTRADIOL\LEVONORGESTREL
     Indication: Contraception
     Route: 065
     Dates: start: 2020

REACTIONS (9)
  - Hepatic cytolysis [Unknown]
  - Biliary colic [Recovered/Resolved]
  - Asthenia [Unknown]
  - Nausea [Unknown]
  - Abdominal pain [Unknown]
  - Urticaria [Unknown]
  - Nasopharyngitis [Unknown]
  - Diarrhoea [Unknown]
  - Decreased appetite [Unknown]

NARRATIVE: CASE EVENT DATE: 20250101
